FAERS Safety Report 7646849-3 (Version None)
Quarter: 2011Q3

REPORT INFORMATION
  Report Type: 
  Country: None (occurrence: None)
  Receive Date: 20110801
  Receipt Date: 20110718
  Transmission Date: 20111222
  Serious: Yes (Disabling, Other)
  Sender: FDA-Public Use
  Company Number: US-ELI_LILLY_AND_COMPANY-US201012003302

PATIENT
  Sex: Female

DRUGS (4)
  1. FORTEO [Suspect]
     Indication: OSTEOPOROSIS
     Dosage: 20 UG, DAILY (1/D)
  2. FORTEO [Suspect]
     Dosage: 20 UG, DAILY (1/D)
     Dates: end: 20101224
  3. FORTEO [Suspect]
     Dosage: 20 UG, DAILY (1/D)
     Dates: start: 20101228
  4. FOSAMAX [Concomitant]

REACTIONS (12)
  - LOSS OF CONSCIOUSNESS [None]
  - MALAISE [None]
  - INFLUENZA LIKE ILLNESS [None]
  - DYSPEPSIA [None]
  - NECK PAIN [None]
  - SYNCOPE [None]
  - GALLBLADDER OPERATION [None]
  - DRUG DOSE OMISSION [None]
  - INJECTION SITE HAEMATOMA [None]
  - ASTHENIA [None]
  - ROTATOR CUFF SYNDROME [None]
  - HEADACHE [None]
